FAERS Safety Report 6148918-6 (Version None)
Quarter: 2009Q2

REPORT INFORMATION
  Report Type: 
  Country: None (occurrence: None)
  Receive Date: 20090407
  Receipt Date: 20090324
  Transmission Date: 20091009
  Serious: Yes (Hospitalization, Other)
  Sender: FDA-Public Use
  Company Number: 238442J08USA

PATIENT
  Age: 47 Year
  Sex: Female

DRUGS (4)
  1. REBIF [Suspect]
     Indication: MULTIPLE SCLEROSIS
     Dosage: 44 MCG, 3 IN 1 WEEKS, SUBCUTANEOUS
     Route: 058
     Dates: start: 20071001
  2. HYDROCORTISONE [Concomitant]
  3. LEXAPRIL (ALL OTHER THERAPEUTIC PRODUCTS) [Concomitant]
  4. WELLBUTRIN [Concomitant]

REACTIONS (10)
  - BLOOD POTASSIUM DECREASED [None]
  - BLOOD PRESSURE INCREASED [None]
  - CONTUSION [None]
  - CONVULSION [None]
  - DEPRESSION [None]
  - TRANSIENT ISCHAEMIC ATTACK [None]
  - TREMOR [None]
  - URINARY HESITATION [None]
  - URINARY RETENTION [None]
  - URINARY TRACT INFECTION [None]
